FAERS Safety Report 13895474 (Version 1)
Quarter: 2017Q3

REPORT INFORMATION
  Report Type: Spontaneous
  Country: US (occurrence: None)
  Receive Date: 20170817
  Receipt Date: 20170817
  Transmission Date: 20171127
  Serious: Yes (Hospitalization)
  Sender: FDA-Public Use
  Company Number: None

PATIENT
  Age: 50 Year
  Sex: Female
  Weight: 121.4 kg

DRUGS (2)
  1. CARBOPLATIN. [Suspect]
     Active Substance: CARBOPLATIN
     Dates: end: 20170720
  2. TAXOL [Suspect]
     Active Substance: PACLITAXEL
     Dates: end: 20170720

REACTIONS (7)
  - Anaemia [None]
  - Asthenia [None]
  - Vomiting [None]
  - Hypophagia [None]
  - Failure to thrive [None]
  - Dehydration [None]
  - Abdominal pain [None]

NARRATIVE: CASE EVENT DATE: 20170723
